FAERS Safety Report 6450701-9 (Version None)
Quarter: 2009Q4

REPORT INFORMATION
  Report Type: 
  Country: None (occurrence: None)
  Receive Date: 20091123
  Receipt Date: 20091109
  Transmission Date: 20100525
  Serious: Yes (Hospitalization, Other)
  Sender: FDA-Public Use
  Company Number: US-ELI_LILLY_AND_COMPANY-US200911002827

PATIENT
  Sex: Male

DRUGS (1)
  1. FORTEO [Suspect]
     Indication: OSTEOPOROSIS
     Dosage: 20 UG, DAILY (1/D)
     Dates: start: 20080301

REACTIONS (5)
  - ANAEMIA [None]
  - BACK PAIN [None]
  - COMPRESSION FRACTURE [None]
  - HAEMOGLOBIN DECREASED [None]
  - OESOPHAGEAL CARCINOMA [None]
